FAERS Safety Report 6433429-0 (Version None)
Quarter: 2009Q4

REPORT INFORMATION
  Report Type: 
  Country: None (occurrence: None)
  Receive Date: 20091106
  Receipt Date: 20091106
  Transmission Date: 20100525
  Serious: Yes (Life-Threatening, Hospitalization)
  Sender: FDA-Public Use
  Company Number: None

PATIENT
  Age: 69 Year
  Sex: Female
  Weight: 54.4316 kg

DRUGS (1)
  1. RECLAST [Suspect]
     Indication: OSTEOPOROSIS
     Dosage: 1 ONCE A YEAR IV
     Route: 042
     Dates: start: 20091019, end: 20091019

REACTIONS (10)
  - AMNESIA [None]
  - ASTHENIA [None]
  - CHILLS [None]
  - COORDINATION ABNORMAL [None]
  - GAIT DISTURBANCE [None]
  - IMMOBILE [None]
  - PAIN [None]
  - PYREXIA [None]
  - VERTIGO [None]
  - VISUAL IMPAIRMENT [None]
